FAERS Safety Report 4607169-4 (Version None)
Quarter: 2005Q1

REPORT INFORMATION
  Report Type: 
  Country: None (occurrence: None)
  Receive Date: 20050311
  Receipt Date: 20050311
  Transmission Date: 20050727
  Serious: Yes (Other)
  Sender: FDA-Public Use
  Company Number: None

PATIENT
  Age: 80 Year
  Sex: Female
  Weight: 72.7 kg

DRUGS (7)
  1. TEQUIN [Suspect]
     Dosage: 400 MG IV DAILY
     Route: 042
     Dates: start: 20041001, end: 20041015
  2. SOLU-MEDROL [Suspect]
     Dosage: 40 MG IV Q 6 HRS
     Route: 042
     Dates: start: 20041003, end: 20041006
  3. COZAAR [Concomitant]
  4. PLAVIX [Concomitant]
  5. REMINYL [Concomitant]
  6. ZOLOFT [Concomitant]
  7. SINEMET [Concomitant]

REACTIONS (1)
  - HYPERGLYCAEMIA [None]
